FAERS Safety Report 6199200-2 (Version None)
Quarter: 2009Q2

REPORT INFORMATION
  Report Type: 
  Country: None (occurrence: None)
  Receive Date: 20090522
  Receipt Date: 20090518
  Transmission Date: 20091009
  Serious: Yes (Death)
  Sender: FDA-Public Use
  Company Number: GB-ROCHE-633882

PATIENT

DRUGS (4)
  1. MYCOPHENOLATE MOFETIL [Suspect]
     Indication: SYSTEMIC LUPUS ERYTHEMATOSUS
     Route: 065
  2. RITUXIMAB [Suspect]
     Indication: SYSTEMIC LUPUS ERYTHEMATOSUS
     Dosage: ADMINISTERED ON TWO OCASSIONS TWO WEEKS APART
     Route: 065
  3. CYCLOPHOSPHAMIDE [Suspect]
     Indication: SYSTEMIC LUPUS ERYTHEMATOSUS
     Dosage: GIVEN ON TWO OCASSIONS TWO WEEKS APART
     Route: 065
  4. METHYLPREDNISOLONE [Suspect]
     Indication: SYSTEMIC LUPUS ERYTHEMATOSUS
     Dosage: ADMINISTERED ON TWO OCASSIONS TWO WEEKS APART
     Route: 065

REACTIONS (1)
  - ACUTE RESPIRATORY DISTRESS SYNDROME [None]
